FAERS Safety Report 8889674 (Version 1)
Quarter: 2012Q4

REPORT INFORMATION
  Report Type: Spontaneous
  Country: US (occurrence: None)
  Receive Date: 20121105
  Receipt Date: 20121105
  Transmission Date: 20130627
  Serious: No
  Sender: FDA-Public Use
  Company Number: None

PATIENT
  Age: 71 Year
  Sex: Female
  Weight: 99.79 kg

DRUGS (1)
  1. VENOFER [Suspect]
     Indication: ANEMIA
     Dosage: 200 mg qod x 5 doses IV Drip
     Route: 041
     Dates: start: 20121015, end: 20121022

REACTIONS (11)
  - Tremor [None]
  - Dizziness [None]
  - Feeling hot [None]
  - Headache [None]
  - Nausea [None]
  - Blood pressure systolic increased [None]
  - Blood pressure diastolic decreased [None]
  - Pyrexia [None]
  - Oedema peripheral [None]
  - Ear discomfort [None]
  - Vulvovaginal burning sensation [None]
